FAERS Safety Report 8784225 (Version 3)
Quarter: 2013Q2

REPORT INFORMATION
  Report Type: Spontaneous
  Country: US (occurrence: US)
  Receive Date: 20120913
  Receipt Date: 20130426
  Transmission Date: 20140414
  Serious: No
  Sender: FDA-Public Use
  Company Number: US-009507513-1208USA011524

PATIENT
  Age: 41 Year
  Sex: Female

DRUGS (9)
  1. FOSAMAX [Suspect]
     Indication: OSTEOPOROSIS
     Dosage: 70 MG, QW
     Route: 048
     Dates: start: 2004, end: 201106
  2. FOSAMAX [Suspect]
     Indication: FEMUR FRACTURE
  3. FOSAMAX [Suspect]
     Indication: BACK INJURY
  4. ADVAIR [Concomitant]
  5. SINGULAIR [Concomitant]
  6. NUCYNTA [Concomitant]
  7. PROAIR (ALBUTEROL SULFATE) [Concomitant]
  8. PERCOCET [Concomitant]
  9. MORPHINE [Concomitant]

REACTIONS (3)
  - Gingival pain [Not Recovered/Not Resolved]
  - Tooth fracture [Not Recovered/Not Resolved]
  - Oral pain [Not Recovered/Not Resolved]
